FAERS Safety Report 5503915-6 (Version None)
Quarter: 2007Q4

REPORT INFORMATION
  Report Type: 
  Country: None (occurrence: None)
  Receive Date: 20071030
  Receipt Date: 20071030
  Transmission Date: 20080405
  Serious: No
  Sender: FDA-Public Use
  Company Number: None

PATIENT
  Sex: Male
  Weight: 106 kg

DRUGS (2)
  1. TAXOTERE [Suspect]
     Dosage: 172.5 MG
  2. PREDNISONE TAB [Suspect]
     Dosage: 210 MG

REACTIONS (3)
  - BODY TEMPERATURE DECREASED [None]
  - NEUTROPHIL COUNT DECREASED [None]
  - WHITE BLOOD CELL COUNT DECREASED [None]
